FAERS Safety Report 8394613-2 (Version None)
Quarter: 2012Q2

REPORT INFORMATION
  Report Type: 
  Country: None (occurrence: None)
  Receive Date: 20120525
  Receipt Date: 20120525
  Transmission Date: 20120825
  Serious: Yes (Hospitalization)
  Sender: FDA-Public Use
  Company Number: None

PATIENT
  Age: 55 Year
  Sex: Female
  Weight: 70.7611 kg

DRUGS (1)
  1. CYMBALTA [Suspect]
     Indication: DEPRESSION
     Dosage: 20 DAILY PO
     Route: 048
     Dates: start: 20120507, end: 20120508

REACTIONS (5)
  - ABDOMINAL PAIN UPPER [None]
  - HYPERHIDROSIS [None]
  - NAUSEA [None]
  - DIZZINESS [None]
  - CHEST PAIN [None]
